FAERS Safety Report 9602510 (Version 2)
Quarter: 2013Q4

REPORT INFORMATION
  Report Type: Spontaneous
  Country: CL (occurrence: CL)
  Receive Date: 20131007
  Receipt Date: 20131007
  Transmission Date: 20140711
  Serious: Yes (Hospitalization, Disabling, Other)
  Sender: FDA-Public Use
  Company Number: CL-ABBVIE-13P-034-1132149-00

PATIENT
  Age: 57 Year
  Sex: Female
  Weight: 96 kg

DRUGS (7)
  1. HUMIRA [Suspect]
     Indication: RHEUMATOID ARTHRITIS
     Route: 058
     Dates: start: 201103, end: 201104
  2. HUMIRA [Suspect]
     Dates: start: 201107, end: 201305
  3. HUMIRA [Suspect]
     Dates: start: 201307
  4. METHOTREXATE [Concomitant]
     Indication: PULMONARY MASS
     Dates: start: 2009, end: 201208
  5. AZULFIDINE [Concomitant]
     Indication: PRODUCT USED FOR UNKNOWN INDICATION
     Dates: start: 2006
  6. FLEXANE [Concomitant]
     Dates: start: 2008
  7. CELEBRA [Concomitant]
     Indication: PRODUCT USED FOR UNKNOWN INDICATION
     Dates: start: 2008

REACTIONS (1)
  - Meningioma [Not Recovered/Not Resolved]
